FAERS Safety Report 8340457-7 (Version None)
Quarter: 2012Q2

REPORT INFORMATION
  Report Type: 
  Country: None (occurrence: None)
  Receive Date: 20120507
  Receipt Date: 20120425
  Transmission Date: 20120825
  Serious: No
  Sender: FDA-Public Use
  Company Number: US-BAYER-2012-043815

PATIENT

DRUGS (1)
  1. NAPROXEN SODIUM [Suspect]

REACTIONS (1)
  - NAUSEA [None]
